FAERS Safety Report 4513920-4 (Version None)
Quarter: 2004Q4

REPORT INFORMATION
  Report Type: 
  Country: None (occurrence: None)
  Receive Date: 20041130
  Receipt Date: 20040924
  Transmission Date: 20050328
  Serious: No
  Sender: FDA-Public Use
  Company Number: US-GLAXOSMITHKLINE-A0527550A

PATIENT
  Sex: Female

DRUGS (1)
  1. WELLBUTRIN XL [Suspect]
     Dosage: 300MG AT NIGHT
     Route: 048
     Dates: start: 20040922

REACTIONS (5)
  - INSOMNIA [None]
  - OEDEMA PERIPHERAL [None]
  - PALMAR ERYTHEMA [None]
  - PRURITUS [None]
  - TREMOR [None]
